FAERS Safety Report 9373587 (Version 1)
Quarter: 2013Q2

REPORT INFORMATION
  Report Type: Spontaneous
  Country: GB (occurrence: GB)
  Receive Date: 20130627
  Receipt Date: 20130627
  Transmission Date: 20140414
  Serious: Yes (Hospitalization)
  Sender: FDA-Public Use
  Company Number: PHHY2013GB064022

PATIENT
  Sex: 0

DRUGS (1)
  1. MIRTAZAPINE [Suspect]
     Indication: DEPRESSIVE SYMPTOM
     Dosage: 15 MG
     Dates: start: 2006

REACTIONS (5)
  - Feeling guilty [Unknown]
  - Depressed mood [Recovering/Resolving]
  - Self-injurious ideation [Unknown]
  - Suicidal ideation [Unknown]
  - Poor quality sleep [Unknown]
